FAERS Safety Report 5976479-0 (Version None)
Quarter: 2008Q4

REPORT INFORMATION
  Report Type: 
  Country: None (occurrence: None)
  Receive Date: 20081125
  Receipt Date: 20081111
  Transmission Date: 20090506
  Serious: Yes (Life-Threatening, Hospitalization)
  Sender: FDA-Public Use
  Company Number: WAES 0810USA05271

PATIENT
  Age: 71 Year
  Sex: Male
  Weight: 75.7507 kg

DRUGS (23)
  1. CAP VORINOSTAT 100 MG [Suspect]
     Indication: ACUTE MYELOID LEUKAEMIA
     Dosage: 400 MG/DAILY/PO
     Route: 048
     Dates: start: 20080913, end: 20080926
  2. CAP VORINOSTAT 100 MG [Suspect]
     Indication: ACUTE MYELOID LEUKAEMIA
     Dosage: 400 MG/DAILY/PO
     Route: 048
     Dates: start: 20081011, end: 20081024
  3. INFUSION (FORM) DECITABINE 38 MG [Suspect]
     Indication: ACUTE MYELOID LEUKAEMIA
     Dosage: 38 MG/DAILY/IV
     Route: 042
     Dates: start: 20080908, end: 20080912
  4. INFUSION (FORM) DECITABINE 38 MG [Suspect]
     Indication: ACUTE MYELOID LEUKAEMIA
     Dosage: 38 MG/DAILY/IV
     Route: 042
     Dates: start: 20081006, end: 20081010
  5. ADVAIR HFA [Concomitant]
  6. COMPAZINE [Concomitant]
  7. DARVON [Concomitant]
  8. LASIX [Concomitant]
  9. LEVAQUIN [Concomitant]
  10. LOPRESSOR [Concomitant]
  11. SYNTHROID [Concomitant]
  12. VFEND [Concomitant]
  13. ZANTAC [Concomitant]
  14. ALLOPURINOL [Concomitant]
  15. ATROPINE (+) DIPHENHYDRAMINE HYD [Concomitant]
  16. CALCIUM (UNSPECIFIED (+) VITAMINS) [Concomitant]
  17. COLCHICINE [Concomitant]
  18. DEXTROMETHORPHAN (+) GUIAFENESIN [Concomitant]
  19. DOCUSATE SODIUM (+) SENNA [Concomitant]
  20. LEVALBUTEROL HYDROCHLORIDE [Concomitant]
  21. MAGNESIUM (UNSPECIFIED) [Concomitant]
  22. PANTOPRAZOLE SODIUM [Concomitant]
  23. POTASSIUM (UNSPECIFIED) [Concomitant]

REACTIONS (15)
  - AGITATION [None]
  - ARRHYTHMIA [None]
  - CARDIAC ARREST [None]
  - DISEASE PROGRESSION [None]
  - ENDOCARDITIS [None]
  - FEBRILE NEUTROPENIA [None]
  - HAEMOGLOBIN DECREASED [None]
  - HEPATIC FUNCTION ABNORMAL [None]
  - LYMPHOCYTE COUNT INCREASED [None]
  - OEDEMA [None]
  - PNEUMONIA [None]
  - RESPIRATORY FAILURE [None]
  - SEPSIS [None]
  - SHOCK [None]
  - WHITE BLOOD CELL COUNT DECREASED [None]
